FAERS Safety Report 5694889-6 (Version None)
Quarter: 2008Q2

REPORT INFORMATION
  Report Type: 
  Country: None (occurrence: None)
  Receive Date: 20080404
  Receipt Date: 20080325
  Transmission Date: 20081010
  Serious: Yes (Other)
  Sender: FDA-Public Use
  Company Number: PHHY2008JP03810

PATIENT
  Age: 47 Year
  Sex: Male

DRUGS (1)
  1. DIOVAN [Suspect]
     Indication: OVERDOSE
     Dosage: 11200 MG, UNK
     Route: 048
     Dates: start: 20080324

REACTIONS (3)
  - ANURIA [None]
  - BLOOD CREATININE INCREASED [None]
  - INTENTIONAL OVERDOSE [None]
